FAERS Safety Report 7651295-2 (Version None)
Quarter: 2011Q3

REPORT INFORMATION
  Report Type: 
  Country: None (occurrence: None)
  Receive Date: 20110802
  Receipt Date: 20110729
  Transmission Date: 20111222
  Serious: Yes (Other)
  Sender: FDA-Public Use
  Company Number: NL-ROXANE LABORATORIES, INC.-2011-RO-01078RO

PATIENT
  Age: 44 Year
  Sex: Male

DRUGS (3)
  1. PREDNISONE [Suspect]
     Indication: XANTHOGRANULOMA
  2. CYCLOPHOSPHAMIDE [Suspect]
     Indication: XANTHOGRANULOMA
  3. AZATHIOPRINE [Suspect]
     Indication: XANTHOGRANULOMA

REACTIONS (2)
  - ABDOMINAL DISCOMFORT [None]
  - WEIGHT DECREASED [None]
